FAERS Safety Report 4613175-6 (Version None)
Quarter: 2005Q1

REPORT INFORMATION
  Report Type: 
  Country: None (occurrence: None)
  Receive Date: 20050316
  Receipt Date: 20050308
  Transmission Date: 20050727
  Serious: Yes (Hospitalization)
  Sender: FDA-Public Use
  Company Number: 2005042404

PATIENT
  Age: 84 Year
  Sex: Female

DRUGS (4)
  1. MACUGEN [Suspect]
     Indication: MACULAR DEGENERATION
     Dosage: (1 IN 6 WK), INTRAVITREOUS
     Dates: start: 20050221, end: 20050221
  2. ESOMEPRAZOLE (ESOMEPRAZOLE) [Concomitant]
  3. LEVOTHYROXINE SODIUM [Concomitant]
  4. FEXOFENADINE HYDROCHLORIDE [Concomitant]

REACTIONS (3)
  - DYSPNOEA [None]
  - HYPERTENSION [None]
  - TACHYCARDIA [None]
